FAERS Safety Report 4368824-7 (Version None)
Quarter: 2004Q2

REPORT INFORMATION
  Report Type: 
  Country: None (occurrence: None)
  Receive Date: 20040528
  Receipt Date: 20040517
  Transmission Date: 20050107
  Serious: Yes (Other)
  Sender: FDA-Public Use
  Company Number: 2004IM000654

PATIENT
  Age: 65 Year
  Sex: Female
  Weight: 92.0802 kg

DRUGS (1)
  1. ACTIMMUNE [Suspect]
     Indication: INTERSTITIAL LUNG DISEASE
     Dosage: 200 UG;TIW SUBCUTANEOUS
     Route: 058
     Dates: start: 20030901

REACTIONS (5)
  - CHILLS [None]
  - DRY MOUTH [None]
  - MYALGIA [None]
  - THIRST [None]
  - TREMOR [None]
